FAERS Safety Report 4632123-6 (Version None)
Quarter: 2005Q2

REPORT INFORMATION
  Report Type: 
  Country: None (occurrence: None)
  Receive Date: 20050411
  Receipt Date: 20050310
  Transmission Date: 20051028
  Serious: Yes (Hospitalization)
  Sender: FDA-Public Use
  Company Number: US-AMGEN-US120182

PATIENT
  Sex: Female
  Weight: 47.7 kg

DRUGS (12)
  1. EPOGEN [Suspect]
     Indication: DIALYSIS
     Route: 042
     Dates: start: 20041224
  2. MANNITOL [Concomitant]
  3. VENOFER [Concomitant]
  4. ZEMPLAR (ABBOTT LABORATORIES) [Concomitant]
  5. PROTONIX [Concomitant]
  6. CLONIDINE [Concomitant]
  7. LABETALOL [Concomitant]
  8. LISINOPRIL [Concomitant]
  9. NIFEDIPINE [Concomitant]
  10. SENSIPAR [Concomitant]
     Indication: HYPERPARATHYROIDISM SECONDARY
     Route: 048
     Dates: start: 20041231
  11. PREMARIN [Concomitant]
  12. INSULIN [Concomitant]

REACTIONS (6)
  - ANAEMIA [None]
  - BLOOD PARATHYROID HORMONE INCREASED [None]
  - CONDITION AGGRAVATED [None]
  - GASTROINTESTINAL HAEMORRHAGE [None]
  - HEPATITIS B SURFACE ANTIGEN POSITIVE [None]
  - IRON DEFICIENCY [None]
